FAERS Safety Report 7087105-4 (Version None)
Quarter: 2010Q4

REPORT INFORMATION
  Report Type: 
  Country: None (occurrence: None)
  Receive Date: 20101106
  Receipt Date: 20101028
  Transmission Date: 20110411
  Serious: No
  Sender: FDA-Public Use
  Company Number: US-WYE-H18430010

PATIENT
  Sex: Male

DRUGS (1)
  1. TORISEL [Suspect]
     Indication: PROSTATE CANCER
     Dosage: DOSE NOT PROVIDED, ADMINISTERED WEEKLY
     Route: 042
     Dates: start: 20101008

REACTIONS (1)
  - BACK PAIN [None]
